FAERS Safety Report 10056685 (Version 1)
Quarter: 2014Q2

REPORT INFORMATION
  Report Type: Spontaneous
  Country: GB (occurrence: GB)
  Receive Date: 20140403
  Receipt Date: 20140403
  Transmission Date: 20141212
  Serious: Yes (Other)
  Sender: FDA-Public Use
  Company Number: GB-MYLANLABS-2014S1006803

PATIENT
  Age: 56 Year
  Sex: Female

DRUGS (5)
  1. HYDROCORTISONE [Suspect]
     Indication: DERMATITIS ATOPIC
     Dosage: 1% HYDROCORTISONE CREAM APPLIED TO FACE TWICE DAILY
     Route: 061
  2. BETAMETHASONE VALERATE [Suspect]
     Indication: DERMATITIS ATOPIC
     Dosage: APPLIED TWICE DAILY TO BODY
     Route: 061
  3. BECLOMETASONE [Suspect]
     Indication: ASTHMA
     Route: 055
  4. PREDNISOLONE [Suspect]
     Indication: DERMATITIS ATOPIC
     Dosage: 12 COURSES PRESCRIBED; AVERAGE DOSE 30MG DAILY FOR 5 DAYS
     Route: 048
  5. PREDNISOLONE [Suspect]
     Indication: ASTHMA
     Dosage: 12 COURSES PRESCRIBED; AVERAGE DOSE 30MG DAILY FOR 5 DAYS
     Route: 048

REACTIONS (2)
  - Cushing^s syndrome [Recovering/Resolving]
  - Adrenocortical insufficiency acute [Recovering/Resolving]
